FAERS Safety Report 12088986 (Version 1)
Quarter: 2016Q1

REPORT INFORMATION
  Report Type: Spontaneous
  Country: GB (occurrence: GB)
  Receive Date: 20160218
  Receipt Date: 20160218
  Transmission Date: 20160526
  Serious: Yes (Other)
  Sender: FDA-Public Use
  Company Number: GB-009507513-1602GBR007848

PATIENT
  Age: 68 Year
  Sex: Female
  Weight: 74 kg

DRUGS (10)
  1. LOSEC (OMEPRAZOLE MAGNESIUM) [Concomitant]
     Dosage: 1 DF, QD
     Dates: start: 20150805, end: 20151127
  2. SERTRALINE HYDROCHLORIDE. [Concomitant]
     Active Substance: SERTRALINE HYDROCHLORIDE
     Dosage: 1 DF, QD
     Dates: start: 20150805
  3. CARBIDOPA (+) LEVODOPA [Concomitant]
     Active Substance: CARBIDOPA\LEVODOPA
     Dosage: TAKE ONE AT 0700, 1200 AND 1700 HOURS
     Dates: start: 20150930
  4. ASPIRIN. [Concomitant]
     Active Substance: ASPIRIN
     Dosage: EVERY MORNING AFTER FOOD
     Dates: start: 20150805
  5. SITAGLIPTIN PHOSPHATE [Suspect]
     Active Substance: SITAGLIPTIN PHOSPHATE
     Dosage: UNK
     Route: 048
     Dates: start: 20150805
  6. CLOPIDOGREL [Concomitant]
     Active Substance: CLOPIDOGREL BISULFATE
     Dosage: EVERY MORNING AFTER FOOD
     Dates: start: 20150805, end: 20160127
  7. LOSARTAN. [Concomitant]
     Active Substance: LOSARTAN
     Dosage: EACH NIGHT
     Dates: start: 20150805
  8. METFORMIN [Concomitant]
     Active Substance: METFORMIN HYDROCHLORIDE
     Dosage: 1 DF, BID
     Dates: start: 20150805
  9. OMEPRAZOLE. [Concomitant]
     Active Substance: OMEPRAZOLE
     Dosage: 1 DF, QD
     Dates: start: 20151127
  10. NITROGLYCERIN. [Concomitant]
     Active Substance: NITROGLYCERIN
     Dosage: 1 DF, AS NECESSARY
     Route: 055
     Dates: start: 20150805

REACTIONS (4)
  - Muscular weakness [Recovered/Resolved]
  - Fatigue [Unknown]
  - Diarrhoea [Unknown]
  - Lethargy [Recovered/Resolved]

NARRATIVE: CASE EVENT DATE: 20160208
